FAERS Safety Report 4326795-3 (Version None)
Quarter: 2004Q1

REPORT INFORMATION
  Report Type: 
  Country: None (occurrence: None)
  Receive Date: 20040330
  Receipt Date: 20040317
  Transmission Date: 20041129
  Serious: Yes (Death, Other)
  Sender: FDA-Public Use
  Company Number: PHBS2004CA03799

PATIENT
  Age: 10 Year
  Sex: Female

DRUGS (4)
  1. GLEEVEC [Suspect]
     Indication: LEUKAEMIA RECURRENT
     Dosage: 600 MG/D
     Route: 048
     Dates: start: 20040127, end: 20040203
  2. ETOPOSIDE [Suspect]
     Dates: start: 20040204, end: 20040205
  3. IFEX [Suspect]
     Dates: start: 20040204, end: 20040205
  4. ANTIBIOTICS [Suspect]

REACTIONS (7)
  - BLAST CELL COUNT INCREASED [None]
  - DRUG INEFFECTIVE [None]
  - LEUKAEMIA [None]
  - MALIGNANT NEOPLASM PROGRESSION [None]
  - NEUTROPENIA [None]
  - PYREXIA [None]
  - RESPIRATORY TRACT INFECTION FUNGAL [None]
